FAERS Safety Report 21884514 (Version 3)
Quarter: 2023Q2

REPORT INFORMATION
  Report Type: Report from Study
  Country: US (occurrence: US)
  Receive Date: 20230119
  Receipt Date: 20230530
  Transmission Date: 20230722
  Serious: Yes (Hospitalization)
  Sender: FDA-Public Use
  Company Number: US-002147023-NVSC2023US010968

PATIENT
  Sex: Female
  Weight: 56.69 kg

DRUGS (3)
  1. ENTRESTO [Suspect]
     Active Substance: SACUBITRIL\VALSARTAN
     Indication: Cardiac failure congestive
     Dosage: 1 DOSAGE FORM, BID (97/103 MG)
     Route: 048
     Dates: start: 202205
  2. ENTRESTO [Suspect]
     Active Substance: SACUBITRIL\VALSARTAN
     Dosage: 1 DOSAGE FORM, BID (49/51 MG)
     Route: 048
  3. ENTRESTO [Suspect]
     Active Substance: SACUBITRIL\VALSARTAN
     Dosage: 1 DOSAGE FORM, BID (24/26 MG)
     Route: 048

REACTIONS (5)
  - Ventricular extrasystoles [Unknown]
  - Atrial fibrillation [Unknown]
  - Palpitations [Unknown]
  - Dysphonia [Unknown]
  - Ejection fraction decreased [Unknown]
